FAERS Safety Report 10313794 (Version 1)
Quarter: 2014Q3

REPORT INFORMATION
  Report Type: Spontaneous
  Country: US (occurrence: US)
  Receive Date: 20140718
  Receipt Date: 20140718
  Transmission Date: 20150326
  Serious: Yes (Other)
  Sender: FDA-Public Use
  Company Number: US-TEVA-494757USA

PATIENT

DRUGS (1)
  1. TRISENOX [Suspect]
     Active Substance: ARSENIC TRIOXIDE
     Indication: ACUTE PROMYELOCYTIC LEUKAEMIA

REACTIONS (6)
  - Electrocardiogram QT prolonged [Unknown]
  - Headache [Unknown]
  - Nausea [Unknown]
  - Gastrointestinal disorder [Unknown]
  - Off label use [Unknown]
  - Vomiting [Unknown]
